FAERS Safety Report 9192318 (Version 1)
Quarter: 2013Q1

REPORT INFORMATION
  Report Type: Spontaneous
  Country: US (occurrence: None)
  Receive Date: 20130326
  Receipt Date: 20130326
  Transmission Date: 20140127
  Serious: No
  Sender: FDA-Public Use
  Company Number: None

PATIENT
  Age: 56 Year
  Sex: Female
  Weight: 48.99 kg

DRUGS (1)
  1. LEVAQUIN [Suspect]
     Indication: PERICHONDRITIS
     Route: 048
     Dates: start: 20121117, end: 20121126

REACTIONS (4)
  - Bursitis [None]
  - Drug ineffective [None]
  - Insomnia [None]
  - Musculoskeletal pain [None]
